FAERS Safety Report 5766700-6 (Version None)
Quarter: 2008Q2

REPORT INFORMATION
  Report Type: 
  Country: None (occurrence: None)
  Receive Date: 20080610
  Receipt Date: 20080610
  Transmission Date: 20081010
  Serious: Yes (Hospitalization, Other)
  Sender: FDA-Public Use
  Company Number: None

PATIENT
  Age: 12 Year
  Sex: Female
  Weight: 21.5 kg

DRUGS (3)
  1. ENBREL [Suspect]
     Indication: JUVENILE ARTHRITIS
     Dosage: 0.8ML ONCE WEEKLY SQ
     Route: 058
     Dates: start: 20060321, end: 20070116
  2. METHOTREXATE [Suspect]
     Indication: JUVENILE ARTHRITIS
     Dosage: 8 TABS ONCE WEEKLY PO
     Route: 048
     Dates: start: 20050712, end: 20070116
  3. NAPROSYN [Concomitant]

REACTIONS (1)
  - ABDOMINAL MASS [None]
